FAERS Safety Report 12809589 (Version 1)
Quarter: 2016Q4

REPORT INFORMATION
  Report Type: Spontaneous
  Country: US (occurrence: US)
  Receive Date: 20161005
  Receipt Date: 20161005
  Transmission Date: 20170207
  Serious: Yes (Other)
  Sender: FDA-Public Use
  Company Number: US-AMGEN-USASP2016125905

PATIENT
  Age: 76 Year
  Sex: Male

DRUGS (1)
  1. PROLIA [Suspect]
     Active Substance: DENOSUMAB
     Indication: OSTEOPOROSIS
     Dosage: UNK, Q6MO
     Route: 065
     Dates: start: 20150311

REACTIONS (6)
  - Renal disorder [Recovering/Resolving]
  - Back pain [Unknown]
  - Blood creatine abnormal [Recovering/Resolving]
  - Dry skin [Recovering/Resolving]
  - Overweight [Unknown]
  - Pruritus [Unknown]
